FAERS Safety Report 15225447 (Version 1)
Quarter: 2018Q3

REPORT INFORMATION
  Report Type: Spontaneous
  Country: US (occurrence: US)
  Receive Date: 20180801
  Receipt Date: 20180801
  Transmission Date: 20181010
  Serious: No
  Sender: FDA-Public Use
  Company Number: US-AUROBINDO-AUR-APU-2018-022911

PATIENT

DRUGS (1)
  1. ROPIVACAINE HYDROCHLORIDE INJECTION USP 0.2% [Suspect]
     Active Substance: ROPIVACAINE HYDROCHLORIDE
     Indication: NERVE BLOCK
     Dosage: 50 MILLIGRAM
     Route: 037

REACTIONS (1)
  - Drug ineffective [Unknown]
